FAERS Safety Report 6653588-4 (Version None)
Quarter: 2010Q1

REPORT INFORMATION
  Report Type: 
  Country: None (occurrence: None)
  Receive Date: 20100326
  Receipt Date: 20100322
  Transmission Date: 20100710
  Serious: Yes (Other)
  Sender: FDA-Public Use
  Company Number: US-SANOFI-AVENTIS-2010SA016988

PATIENT
  Age: 45 Year
  Sex: Male

DRUGS (2)
  1. APIDRA [Suspect]
     Dosage: TAKES INSULIN ON SLIDING SCALE ;AVERAGE 8 UNITS
     Route: 058
     Dates: start: 20080101
  2. OPTICLICK [Suspect]
     Dates: start: 20080101

REACTIONS (2)
  - CONDITION AGGRAVATED [None]
  - DIABETIC RETINOPATHY [None]
